FAERS Safety Report 4965420-5 (Version None)
Quarter: 2006Q2

REPORT INFORMATION
  Report Type: 
  Country: None (occurrence: None)
  Receive Date: 20060406
  Receipt Date: 20050930
  Transmission Date: 20061013
  Serious: Yes (Hospitalization)
  Sender: FDA-Public Use
  Company Number: US-MERCK-0510USA01340

PATIENT
  Age: 55 Year
  Sex: Female
  Weight: 57 kg

DRUGS (11)
  1. VIOXX [Suspect]
     Indication: ARTHRALGIA
     Route: 048
     Dates: start: 20020401, end: 20040601
  2. VIOXX [Suspect]
     Route: 048
     Dates: start: 20030701, end: 20030827
  3. ADVAIR DISKUS 100/50 [Concomitant]
     Route: 065
  4. PENTOXIFYLLINE [Concomitant]
     Route: 048
  5. PREMARIN [Concomitant]
     Route: 065
  6. CLONIDINE [Concomitant]
     Route: 048
  7. FUROSEMIDE [Concomitant]
     Route: 065
  8. LANOXIN [Concomitant]
     Route: 065
  9. METOCLOPRAMIDE [Concomitant]
     Route: 065
  10. POTASSIUM CHLORIDE [Concomitant]
     Route: 065
  11. VASOTEC [Suspect]
     Route: 048
     Dates: end: 20030827

REACTIONS (19)
  - CARDIAC FAILURE CONGESTIVE [None]
  - CARDIOMYOPATHY [None]
  - CARDIOVASCULAR DISORDER [None]
  - CEREBROVASCULAR ACCIDENT [None]
  - CORONARY ARTERY DISEASE [None]
  - DECREASED APPETITE [None]
  - HYPERCHLORHYDRIA [None]
  - HYPERKALAEMIA [None]
  - HYPOTENSION [None]
  - ILIAC ARTERY STENOSIS [None]
  - LIVER DISORDER [None]
  - MITRAL VALVE INCOMPETENCE [None]
  - MULTI-ORGAN DISORDER [None]
  - MYOCARDIAL INFARCTION [None]
  - OCCULT BLOOD POSITIVE [None]
  - PERIPHERAL ARTERY DISSECTION [None]
  - PERIPHERAL VASCULAR DISORDER [None]
  - PULMONARY EMBOLISM [None]
  - RENAL DISORDER [None]
